FAERS Safety Report 23692496 (Version 1)
Quarter: 2024Q2

REPORT INFORMATION
  Report Type: Spontaneous
  Country: KE (occurrence: KE)
  Receive Date: 20240401
  Receipt Date: 20240401
  Transmission Date: 20240716
  Serious: Yes (Hospitalization, Other)
  Sender: FDA-Public Use
  Company Number: KE-SA-2019SA122907

PATIENT
  Age: 50 Year
  Sex: Male

DRUGS (1)
  1. DOCETAXEL [Suspect]
     Active Substance: DOCETAXEL\DOCETAXEL ANHYDROUS
     Indication: Adenocarcinoma gastric
     Dosage: UNK UNK, QCY SECOND-LINE CHEMOTHERAPY

REACTIONS (17)
  - Gait inability [Recovering/Resolving]
  - Palmar-plantar erythrodysaesthesia syndrome [Recovering/Resolving]
  - Burning sensation [Recovering/Resolving]
  - Peripheral swelling [Recovering/Resolving]
  - Pain in extremity [Recovering/Resolving]
  - Gait disturbance [Recovering/Resolving]
  - Skin hyperpigmentation [Recovering/Resolving]
  - Pain of skin [Recovering/Resolving]
  - Skin tightness [Recovering/Resolving]
  - Hypoaesthesia [Recovering/Resolving]
  - Grip strength decreased [Recovering/Resolving]
  - Ascites [Unknown]
  - Weight bearing difficulty [Recovering/Resolving]
  - Mouth ulceration [Unknown]
  - Sedation [Unknown]
  - Abdominal distension [Unknown]
  - Drug ineffective [Unknown]
